FAERS Safety Report 16913195 (Version 1)
Quarter: 2019Q4

REPORT INFORMATION
  Report Type: Spontaneous
  Country: US (occurrence: US)
  Receive Date: 20191014
  Receipt Date: 20191014
  Transmission Date: 20200122
  Serious: No
  Sender: FDA-Public Use
  Company Number: US-C B FLEET CO INC-201901-US-000089

PATIENT
  Sex: Female

DRUGS (1)
  1. MONISTAT 1 COMBINATION PACK [Suspect]
     Active Substance: MICONAZOLE NITRATE
     Indication: PRODUCT USED FOR UNKNOWN INDICATION
     Dosage: CONSUMER DID NOT STATE EXACTLY WHAT SHE USED. OVULE IS 1200MG, EXTERNAL CREAM IS 2%
     Route: 067

REACTIONS (4)
  - Vulvovaginal swelling [Unknown]
  - Vulvovaginal burning sensation [Unknown]
  - Uterine inflammation [Unknown]
  - Vulvovaginal discomfort [Unknown]
